FAERS Safety Report 23936262 (Version 1)
Quarter: 2024Q2

REPORT INFORMATION
  Report Type: Spontaneous
  Country: KR (occurrence: KR)
  Receive Date: 20240604
  Receipt Date: 20240604
  Transmission Date: 20240715
  Serious: Yes (Hospitalization)
  Sender: FDA-Public Use
  Company Number: KR-TAKEDA-2024TUS050990

PATIENT
  Sex: Male

DRUGS (22)
  1. OXALIPLATIN [Suspect]
     Active Substance: OXALIPLATIN
     Indication: Chemotherapy
     Dosage: UNK UNK, QD
     Route: 042
     Dates: start: 20210706, end: 20210706
  2. CHLORPHENIRAMINE MALEATE [Suspect]
     Active Substance: CHLORPHENIRAMINE MALEATE
     Indication: Premedication
     Dosage: 4 MILLIGRAM, QD
     Route: 042
     Dates: start: 20210706, end: 20210706
  3. IRINOTECAN HYDROCHLORIDE [Suspect]
     Active Substance: IRINOTECAN HYDROCHLORIDE
     Indication: Chemotherapy
     Dosage: UNK UNK, QD
     Route: 042
     Dates: start: 20210706, end: 20210706
  4. TRAMADOL HYDROCHLORIDE [Suspect]
     Active Substance: TRAMADOL HYDROCHLORIDE
     Indication: Analgesic therapy
     Dosage: UNK
     Route: 042
     Dates: start: 20210707, end: 20210707
  5. TRAMADOL HYDROCHLORIDE [Suspect]
     Active Substance: TRAMADOL HYDROCHLORIDE
     Indication: Analgesic therapy
     Dosage: UNK
     Route: 048
     Dates: start: 20210708, end: 20210720
  6. CIMETIDINE [Concomitant]
     Active Substance: CIMETIDINE
     Dosage: 200 MILLIGRAM
     Route: 042
     Dates: start: 20210706, end: 20210706
  7. METOCLOPRAMIDE HYDROCHLORIDE [Suspect]
     Active Substance: METOCLOPRAMIDE HYDROCHLORIDE
     Indication: Premedication
     Dosage: 10 MILLIGRAM, QD
     Route: 042
     Dates: start: 20210706, end: 20210706
  8. LEUCOVORIN CALCIUM [Concomitant]
     Active Substance: LEUCOVORIN CALCIUM
     Dosage: UNK
     Route: 042
     Dates: start: 20210706, end: 20210706
  9. MEPERIDINE [Suspect]
     Active Substance: MEPERIDINE
     Indication: Analgesic therapy
     Dosage: 25 MILLIGRAM, QD
     Route: 030
     Dates: start: 20210707, end: 20210707
  10. BIPHENYL DIMETHYL DICARBOXYLATE\URSODIOL [Suspect]
     Active Substance: BIPHENYL DIMETHYL DICARBOXYLATE\URSODIOL
     Indication: Hepatic function abnormal
     Dosage: UNK
     Route: 048
     Dates: start: 20210706, end: 20210713
  11. SACCHAROMYCES CEREVISIAE [Suspect]
     Active Substance: SACCHAROMYCES CEREVISIAE
     Indication: Abdominal discomfort
     Dosage: UNK
     Route: 048
     Dates: start: 20210708
  12. URSODIOL [Suspect]
     Active Substance: URSODIOL
     Indication: Hepatic function abnormal
     Dosage: UNK
     Route: 048
     Dates: start: 20210706, end: 20210707
  13. URSODIOL [Suspect]
     Active Substance: URSODIOL
     Indication: Hepatic function abnormal
     Dosage: UNK
     Route: 048
     Dates: start: 20210707, end: 20210713
  14. LANSOPRAZOLE [Suspect]
     Active Substance: LANSOPRAZOLE
     Indication: Peptic ulcer
     Dosage: 15 MILLIGRAM, QD
     Route: 048
     Dates: start: 20210708, end: 20210720
  15. DEXAMETHASONE SODIUM PHOSPHATE [Suspect]
     Active Substance: DEXAMETHASONE PHOSPHATE\DEXAMETHASONE SODIUM PHOSPHATE
     Indication: Premedication
     Dosage: 10 MILLIGRAM, QD
     Route: 065
     Dates: start: 20210706, end: 20210706
  16. SODIUM BICARBONATE [Suspect]
     Active Substance: SODIUM BICARBONATE
     Indication: Hyperchlorhydria
     Dosage: UNK
     Route: 048
     Dates: start: 20210706, end: 20210707
  17. MONTMORILLONITE [Suspect]
     Active Substance: MONTMORILLONITE
     Indication: Prophylaxis against diarrhoea
     Dosage: UNK
     Route: 048
     Dates: start: 20210708
  18. ROSUVASTATIN CALCIUM [Concomitant]
     Active Substance: ROSUVASTATIN CALCIUM
     Indication: Hyperlipidaemia
     Dosage: 10 MILLIGRAM, QD
     Route: 048
     Dates: start: 20210707, end: 20210711
  19. FLUOROURACIL [Suspect]
     Active Substance: FLUOROURACIL
     Indication: Chemotherapy
     Dosage: UNK UNK, QD
     Route: 042
     Dates: start: 20210707, end: 20210708
  20. FLUOROURACIL [Suspect]
     Active Substance: FLUOROURACIL
     Indication: Chemotherapy
     Dosage: UNK UNK, QD
     Route: 042
     Dates: start: 20210707, end: 20210707
  21. ATROPINE SULFATE [Suspect]
     Active Substance: ATROPINE SULFATE
     Indication: Premedication
     Dosage: 0.5 MILLIGRAM, QD
     Route: 042
     Dates: start: 20210706, end: 20210706
  22. BENZYDAMINE HYDROCHLORIDE [Suspect]
     Active Substance: BENZYDAMINE HYDROCHLORIDE
     Indication: Throat irritation
     Dosage: 15 MILLILITER, QD
     Route: 048
     Dates: start: 20210706, end: 20210720

REACTIONS (1)
  - Cerebrovascular accident [Recovered/Resolved]

NARRATIVE: CASE EVENT DATE: 20210708
